FAERS Safety Report 8025309-4 (Version None)
Quarter: 2012Q1

REPORT INFORMATION
  Report Type: 
  Country: None (occurrence: None)
  Receive Date: 20120105
  Receipt Date: 20111223
  Transmission Date: 20120608
  Serious: Yes (Hospitalization)
  Sender: FDA-Public Use
  Company Number: CH-ABBOTT-11P-151-0886286-00

PATIENT
  Sex: Male
  Weight: 71 kg

DRUGS (6)
  1. PREDNISOLONE [Concomitant]
  2. IMODIUM [Concomitant]
     Indication: COLITIS ULCERATIVE
     Route: 048
     Dates: start: 20100901
  3. PREDNISOLONE [Concomitant]
     Indication: COLITIS ULCERATIVE
     Route: 048
     Dates: start: 20110901
  4. AZATHIOPRINE [Concomitant]
     Indication: COLITIS ULCERATIVE
     Route: 048
     Dates: start: 20101001
  5. ERYCONCENTRATES [Concomitant]
     Indication: PRODUCT USED FOR UNKNOWN INDICATION
     Dosage: 2 X RU 500 ML I.V.
     Route: 042
  6. HUMIRA [Suspect]
     Indication: COLITIS ULCERATIVE
     Route: 058
     Dates: start: 20111103, end: 20111119

REACTIONS (3)
  - BLOOD COUNT ABNORMAL [None]
  - PANCYTOPENIA [None]
  - DIARRHOEA HAEMORRHAGIC [None]
